FAERS Safety Report 6108693-8 (Version None)
Quarter: 2009Q1

REPORT INFORMATION
  Report Type: 
  Country: None (occurrence: None)
  Receive Date: 20090305
  Receipt Date: 20090218
  Transmission Date: 20090719
  Serious: Yes (Other)
  Sender: FDA-Public Use
  Company Number: 2009S1003011

PATIENT
  Age: 40 Year
  Sex: Female

DRUGS (3)
  1. PROPOFOL [Suspect]
     Indication: GENERAL ANAESTHESIA
  2. FENTANYL-100 [Suspect]
     Indication: GENERAL ANAESTHESIA
  3. VECURONIUM BROMIDE [Suspect]
     Indication: GENERAL ANAESTHESIA

REACTIONS (4)
  - BRADYCARDIA [None]
  - CARDIAC ARREST [None]
  - PROCEDURAL COMPLICATION [None]
  - SICK SINUS SYNDROME [None]
